FAERS Safety Report 6689889-3 (Version None)
Quarter: 2010Q2

REPORT INFORMATION
  Report Type: 
  Country: None (occurrence: None)
  Receive Date: 20100421
  Receipt Date: 20100409
  Transmission Date: 20101027
  Serious: Yes (Hospitalization)
  Sender: FDA-Public Use
  Company Number: IT-GENZYME-POMP-1000886

PATIENT
  Sex: Male

DRUGS (1)
  1. MYOZYME [Suspect]
     Indication: GLYCOGEN STORAGE DISEASE TYPE II
     Dosage: UNK

REACTIONS (4)
  - BLOOD IMMUNOGLOBULIN G INCREASED [None]
  - DRUG INEFFECTIVE [None]
  - HYPOTONIA [None]
  - RESPIRATORY DISORDER [None]
